FAERS Safety Report 13795764 (Version 1)
Quarter: 2017Q3

REPORT INFORMATION
  Report Type: Report from Study
  Country: US (occurrence: US)
  Receive Date: 20170726
  Receipt Date: 20170726
  Transmission Date: 20171127
  Serious: Yes (Death, Hospitalization)
  Sender: FDA-Public Use
  Company Number: US-BAYER-2017-007681

PATIENT
  Age: 69 Year
  Sex: Male
  Weight: 78.91 kg

DRUGS (11)
  1. NIFEDIPINE. [Concomitant]
     Active Substance: NIFEDIPINE
  2. ENOXAPARIN [Concomitant]
     Active Substance: ENOXAPARIN
  3. PREDNISONE. [Concomitant]
     Active Substance: PREDNISONE
  4. MULTIVITAMIN [Concomitant]
     Active Substance: VITAMINS
  5. TRAMADOL. [Concomitant]
     Active Substance: TRAMADOL
  6. LEVALBUTEROL HYDROCHLORIDE. [Concomitant]
     Active Substance: LEVALBUTEROL HYDROCHLORIDE
  7. OXYCONTIN [Concomitant]
     Active Substance: OXYCODONE HYDROCHLORIDE
  8. OXYCODONE [Concomitant]
     Active Substance: OXYCODONE
  9. ONDANSETRON [Concomitant]
     Active Substance: ONDANSETRON
  10. STIVARGA [Suspect]
     Active Substance: REGORAFENIB
     Indication: COLON CANCER
     Dosage: 160 MG DAILY FOR 21 DAYS OF 28 DAYS
     Route: 048
     Dates: start: 20161011
  11. BUDESONIDE. [Concomitant]
     Active Substance: BUDESONIDE

REACTIONS (2)
  - Hospitalisation [Unknown]
  - Respiratory failure [Fatal]

NARRATIVE: CASE EVENT DATE: 20170117
